FAERS Safety Report 7654164-7 (Version None)
Quarter: 2011Q3

REPORT INFORMATION
  Report Type: 
  Country: None (occurrence: None)
  Receive Date: 20110803
  Receipt Date: 20110729
  Transmission Date: 20111222
  Serious: Yes (Death, Other)
  Sender: FDA-Public Use
  Company Number: PHHY2011PT58998

PATIENT
  Sex: Male
  Weight: 60 kg

DRUGS (1)
  1. GLEEVEC [Suspect]
     Indication: GASTROINTESTINAL STROMAL TUMOUR
     Dosage: 400 MG, QD
     Route: 048
     Dates: start: 20110421

REACTIONS (8)
  - METASTASES TO PERITONEUM [None]
  - NEOPLASM MALIGNANT [None]
  - METASTASES TO DIAPHRAGM [None]
  - TUMOUR NECROSIS [None]
  - HAEMORRHAGE [None]
  - HAEMATEMESIS [None]
  - METASTASES TO LIVER [None]
  - METASTASES TO RETROPERITONEUM [None]
